FAERS Safety Report 9440932 (Version 2)
Quarter: 2013Q3

REPORT INFORMATION
  Report Type: Spontaneous
  Country: US (occurrence: None)
  Receive Date: 20130801
  Receipt Date: 20130904
  Transmission Date: 20140515
  Serious: Yes (Other)
  Sender: FDA-Public Use
  Company Number: AMAG201300121

PATIENT
  Age: 63 Year
  Sex: Female

DRUGS (1)
  1. FERAHEME (FERUMOXYTOL) INJECTION, 510MG [Suspect]
     Dosage: 75 MG IV BOLUS FOLLOWED BY 435MG OVER 15 MIN
     Route: 040

REACTIONS (12)
  - Deep vein thrombosis [None]
  - Brain stem haemorrhage [None]
  - Pulmonary embolism [None]
  - Central nervous system lymphoma [None]
  - Malignant neoplasm progression [None]
  - Deep vein thrombosis [None]
  - Deep vein thrombosis [None]
  - Haemorrhoids [None]
  - Pain [None]
  - Anxiety [None]
  - Claustrophobia [None]
  - Cystitis [None]
